FAERS Safety Report 5704182-0 (Version None)
Quarter: 2008Q2

REPORT INFORMATION
  Report Type: 
  Country: None (occurrence: None)
  Receive Date: 20080414
  Receipt Date: 20080403
  Transmission Date: 20081010
  Serious: Yes (Hospitalization)
  Sender: FDA-Public Use
  Company Number: FR-AVENTIS-200811236FR

PATIENT
  Age: 82 Year
  Sex: Female

DRUGS (13)
  1. LOVENOX [Suspect]
     Route: 058
     Dates: start: 20080125, end: 20080129
  2. SOLUTIONS FOR PARENTERAL NUTRITION [Suspect]
     Route: 042
     Dates: start: 20080125, end: 20080129
  3. SOLUTIONS FOR PARENTERAL NUTRITION [Suspect]
     Route: 042
     Dates: end: 20080124
  4. KARDEGIC                           /00002703/ [Concomitant]
     Dates: end: 20080125
  5. PLAVIX [Concomitant]
     Route: 048
     Dates: end: 20080127
  6. IKOREL [Concomitant]
     Route: 048
     Dates: end: 20080127
  7. DETENSIEL                          /00802601/ [Concomitant]
     Route: 048
     Dates: end: 20080127
  8. FLAGYL [Concomitant]
  9. CIFLOX                             /00697201/ [Concomitant]
  10. LASILIX                            /00032601/ [Concomitant]
  11. SERUM GLUCOSE [Concomitant]
     Dates: end: 20080128
  12. SERUM GLUCOSE [Concomitant]
     Dates: start: 20080129
  13. SOLU-MEDROL [Concomitant]

REACTIONS (5)
  - BLOOD ELECTROLYTES ABNORMAL [None]
  - DEPRESSED LEVEL OF CONSCIOUSNESS [None]
  - DYSPNOEA [None]
  - HYPERLACTACIDAEMIA [None]
  - TACHYCARDIA [None]
